FAERS Safety Report 7018558-5 (Version None)
Quarter: 2010Q3

REPORT INFORMATION
  Report Type: 
  Country: None (occurrence: None)
  Receive Date: 20100928
  Receipt Date: 20100917
  Transmission Date: 20110219
  Serious: Yes (Other)
  Sender: FDA-Public Use
  Company Number: CA-JNJFOC-20100907582

PATIENT
  Sex: Female

DRUGS (2)
  1. MOTRIN IB [Suspect]
     Route: 048
  2. MOTRIN IB [Suspect]
     Indication: PRODUCT USED FOR UNKNOWN INDICATION
     Dosage: 200MG TWICE ON 15-SEP-2010 AND ONCE AT BEDTIME ON 16-SEP-2010.
     Route: 048

REACTIONS (1)
  - BLOOD GLUCOSE INCREASED [None]
